FAERS Safety Report 4812681-9 (Version None)
Quarter: 2005Q4

REPORT INFORMATION
  Report Type: 
  Country: None (occurrence: None)
  Receive Date: 20051028
  Receipt Date: 20041103
  Transmission Date: 20060501
  Serious: No
  Sender: FDA-Public Use
  Company Number: US-GLAXOSMITHKLINE-A0532880A

PATIENT
  Sex: Male

DRUGS (3)
  1. ADVAIR DISKUS 100/50 [Suspect]
  2. SINGULAIR [Concomitant]
     Dosage: 10MG PER DAY
     Route: 065
  3. ALBUTEROL [Concomitant]

REACTIONS (3)
  - CANDIDIASIS [None]
  - LARYNGITIS [None]
  - PEAK EXPIRATORY FLOW RATE DECREASED [None]
